FAERS Safety Report 10254777 (Version 1)
Quarter: 2014Q2

REPORT INFORMATION
  Report Type: Spontaneous
  Country: US (occurrence: US)
  Receive Date: 20140624
  Receipt Date: 20140624
  Transmission Date: 20141212
  Serious: Yes (Other)
  Sender: FDA-Public Use
  Company Number: US-BAYER-2014-094103

PATIENT
  Age: 34 Year
  Sex: Female
  Weight: 99.1 kg

DRUGS (2)
  1. YAZ [Suspect]
  2. VICODIN [Concomitant]

REACTIONS (1)
  - Deep vein thrombosis [None]
